FAERS Safety Report 16266381 (Version 1)
Quarter: 2019Q2

REPORT INFORMATION
  Report Type: Spontaneous
  Country: CH (occurrence: CH)
  Receive Date: 20190502
  Receipt Date: 20190502
  Transmission Date: 20190711
  Serious: Yes (Other)
  Sender: FDA-Public Use
  Company Number: CH-FERRINGPH-2019FE02382

PATIENT

DRUGS (2)
  1. DESMOPRESSIN [Suspect]
     Active Substance: DESMOPRESSIN
     Dosage: UP TO A MAXIMUM OF 60 ?G DAILY
     Route: 045
  2. DESMOPRESSIN [Suspect]
     Active Substance: DESMOPRESSIN
     Indication: DIABETES INSIPIDUS
     Dosage: SPORADICALLY
     Route: 045

REACTIONS (4)
  - Headache [Unknown]
  - Hyponatraemia [Recovered/Resolved]
  - Polyuria [Recovered/Resolved]
  - Weight increased [Unknown]
